FAERS Safety Report 5806142-8 (Version None)
Quarter: 2008Q3

REPORT INFORMATION
  Report Type: 
  Country: None (occurrence: None)
  Receive Date: 20080710
  Receipt Date: 20080702
  Transmission Date: 20090109
  Serious: Yes (Disabling, Other)
  Sender: FDA-Public Use
  Company Number: US-MERCK-0712USA08208

PATIENT
  Age: 64 Year
  Sex: Female

DRUGS (1)
  1. FOSAMAX [Suspect]
     Indication: OSTEOPENIA
     Route: 048
     Dates: start: 20021011, end: 20040601

REACTIONS (10)
  - ADVERSE EVENT [None]
  - DEAFNESS [None]
  - DEVICE RELATED INFECTION [None]
  - FAILURE OF IMPLANT [None]
  - NASAL SEPTUM DEVIATION [None]
  - ONYCHOMYCOSIS [None]
  - OTITIS MEDIA [None]
  - RESORPTION BONE INCREASED [None]
  - UPPER LIMB FRACTURE [None]
  - UPPER RESPIRATORY TRACT INFECTION [None]
